FAERS Safety Report 6915825-8 (Version None)
Quarter: 2010Q3

REPORT INFORMATION
  Report Type: 
  Country: None (occurrence: None)
  Receive Date: 20100810
  Receipt Date: 20100713
  Transmission Date: 20110219
  Serious: No
  Sender: FDA-Public Use
  Company Number: A0859761A

PATIENT
  Sex: Female

DRUGS (9)
  1. PAXIL [Suspect]
     Indication: BALANCE DISORDER
     Dosage: 30MG PER DAY
     Route: 048
     Dates: start: 20100326
  2. PAROXETINE HCL [Suspect]
     Indication: BALANCE DISORDER
     Dosage: 30MG PER DAY
     Route: 065
     Dates: start: 20010101, end: 20100321
  3. ALPRAZOLAM [Concomitant]
  4. ACETAZOLAMIDE [Concomitant]
  5. VIVELLE [Concomitant]
  6. CALCIUM + VITAMIN D [Concomitant]
  7. VITAMIN D [Concomitant]
  8. MULTI-VITAMIN [Concomitant]
  9. CITRUCEL [Concomitant]

REACTIONS (8)
  - BALANCE DISORDER [None]
  - DEPRESSION [None]
  - DRUG INEFFECTIVE [None]
  - FALL [None]
  - GAIT DISTURBANCE [None]
  - HEAD INJURY [None]
  - IRRITABILITY [None]
  - THERAPEUTIC RESPONSE DECREASED [None]
